FAERS Safety Report 25613338 (Version 2)
Quarter: 2025Q3

REPORT INFORMATION
  Report Type: Spontaneous
  Country: EU (occurrence: EU)
  Receive Date: 20250728
  Receipt Date: 20250901
  Transmission Date: 20251020
  Serious: Yes (Hospitalization, Other)
  Sender: SLATE RUN
  Company Number: EU-SLATERUN-2025SRLIT00103

PATIENT
  Age: 78 Year
  Sex: Male

DRUGS (4)
  1. METOPROLOL [Suspect]
     Active Substance: METOPROLOL
     Indication: Hypertension
     Route: 065
  2. AMLODIPINE BESYLATE\LISINOPRIL [Suspect]
     Active Substance: AMLODIPINE BESYLATE\LISINOPRIL
     Indication: Hypertension
     Dosage: 5/10MG ONCE A DAY
     Route: 065
  3. MOXONIDINE [Suspect]
     Active Substance: MOXONIDINE
     Indication: Hypertension
     Route: 065
  4. MIRABEGRON [Suspect]
     Active Substance: MIRABEGRON
     Indication: Benign prostatic hyperplasia
     Route: 065

REACTIONS (2)
  - Basal cell carcinoma [Unknown]
  - Product contamination [Unknown]
